FAERS Safety Report 24093446 (Version 1)
Quarter: 2024Q3

REPORT INFORMATION
  Report Type: Spontaneous
  Country: US (occurrence: US)
  Receive Date: 20240715
  Receipt Date: 20240715
  Transmission Date: 20241016
  Serious: No
  Sender: NOVO NORDISK
  Company Number: US-NOVOPROD-1195773

PATIENT
  Age: 63 Year
  Sex: Female

DRUGS (1)
  1. SEMAGLUTIDE [Suspect]
     Active Substance: SEMAGLUTIDE
     Indication: Product used for unknown indication
     Dosage: 1 MG, QW
     Route: 058
     Dates: start: 20240131

REACTIONS (3)
  - Weight increased [Not Recovered/Not Resolved]
  - Weight loss poor [Unknown]
  - Counterfeit product administered [Not Recovered/Not Resolved]

NARRATIVE: CASE EVENT DATE: 20240131
